FAERS Safety Report 7427969-5 (Version None)
Quarter: 2011Q2

REPORT INFORMATION
  Report Type: 
  Country: None (occurrence: None)
  Receive Date: 20110412
  Receipt Date: 20110406
  Transmission Date: 20111010
  Serious: Yes (Other)
  Sender: FDA-Public Use
  Company Number: 027956

PATIENT
  Sex: Female
  Weight: 68.2 kg

DRUGS (1)
  1. CIMZIA [Suspect]
     Indication: CROHN'S DISEASE
     Dosage: (400 MG  1X/4 WEEKS SUBCUTANEOUS)
     Route: 058
     Dates: start: 20110217

REACTIONS (2)
  - DRUG HYPERSENSITIVITY [None]
  - UVEITIS [None]
